FAERS Safety Report 17156913 (Version 7)
Quarter: 2022Q1

REPORT INFORMATION
  Report Type: Spontaneous
  Country: US (occurrence: US)
  Receive Date: 20191216
  Receipt Date: 20220105
  Transmission Date: 20220424
  Serious: Yes (Other)
  Sender: FDA-Public Use
  Company Number: US-GILEAD-2019-0441951

PATIENT
  Sex: Male
  Weight: 104.31 kg

DRUGS (14)
  1. TRUVADA [Suspect]
     Active Substance: EMTRICITABINE\TENOFOVIR DISOPROXIL FUMARATE
     Indication: HIV infection
     Dosage: UNK
     Route: 048
     Dates: start: 2009, end: 2017
  2. TRUVADA [Suspect]
     Active Substance: EMTRICITABINE\TENOFOVIR DISOPROXIL FUMARATE
     Dosage: UNK
     Route: 048
     Dates: start: 2007, end: 2016
  3. OMEPRAZOLE [Concomitant]
     Active Substance: OMEPRAZOLE
  4. PRAVASTATIN [Concomitant]
     Active Substance: PRAVASTATIN
  5. EPZICOM [Concomitant]
     Active Substance: ABACAVIR SULFATE\LAMIVUDINE
  6. KALETRA [Concomitant]
     Active Substance: LOPINAVIR\RITONAVIR
  7. TRIUMEQ [Concomitant]
     Active Substance: ABACAVIR SULFATE\DOLUTEGRAVIR SODIUM\LAMIVUDINE
  8. ACETAMINOPHEN [Concomitant]
     Active Substance: ACETAMINOPHEN
  9. IBUPROFEN [Concomitant]
     Active Substance: IBUPROFEN
  10. TRIAMCINOLONE [Concomitant]
     Active Substance: TRIAMCINOLONE
  11. SUSTIVA [Concomitant]
     Active Substance: EFAVIRENZ
  12. EMTRICITABINE [Concomitant]
     Active Substance: EMTRICITABINE
  13. FLUNISOLIDE [Concomitant]
     Active Substance: FLUNISOLIDE
  14. LOPINAVIR [Concomitant]
     Active Substance: LOPINAVIR

REACTIONS (12)
  - Chronic kidney disease [Unknown]
  - Osteoporosis [Not Recovered/Not Resolved]
  - Renal failure [Unknown]
  - Drug ineffective [Unknown]
  - Bone density decreased [Unknown]
  - Renal disorder [Not Recovered/Not Resolved]
  - Economic problem [Unknown]
  - Anhedonia [Unknown]
  - Emotional distress [Unknown]
  - Anxiety [Unknown]
  - Dysstasia [Unknown]
  - Pain [Unknown]

NARRATIVE: CASE EVENT DATE: 20150101
